FAERS Safety Report 6779755-7 (Version None)
Quarter: 2010Q2

REPORT INFORMATION
  Report Type: 
  Country: None (occurrence: None)
  Receive Date: 20100618
  Receipt Date: 20100609
  Transmission Date: 20101027
  Serious: Yes (Hospitalization)
  Sender: FDA-Public Use
  Company Number: FR-JNJFOC-20090306741

PATIENT
  Age: 79 Year
  Sex: Female

DRUGS (7)
  1. RISPERDAL [Suspect]
     Indication: DRUG USE FOR UNKNOWN INDICATION
     Route: 048
  2. TAREG [Interacting]
     Indication: DRUG USE FOR UNKNOWN INDICATION
     Route: 048
  3. LASIX [Interacting]
     Indication: DRUG USE FOR UNKNOWN INDICATION
     Route: 048
  4. MONICOR LP [Interacting]
     Indication: DRUG USE FOR UNKNOWN INDICATION
     Route: 048
  5. SOTALOL [Interacting]
     Indication: DRUG USE FOR UNKNOWN INDICATION
     Route: 048
  6. VASTAREL [Interacting]
     Indication: DRUG USE FOR UNKNOWN INDICATION
     Route: 048
  7. UNSPECIFIED MEDICATIONS [Concomitant]
     Route: 065

REACTIONS (7)
  - DEMENTIA [None]
  - DRUG INTERACTION [None]
  - FALL [None]
  - MALAISE [None]
  - ORTHOSTATIC HYPOTENSION [None]
  - OSTEOARTHRITIS [None]
  - TRAUMATIC BRAIN INJURY [None]
